FAERS Safety Report 4566171-1 (Version None)
Quarter: 2005Q1

REPORT INFORMATION
  Report Type: 
  Country: None (occurrence: None)
  Receive Date: 20050201
  Receipt Date: 20050124
  Transmission Date: 20050727
  Serious: Yes (Hospitalization)
  Sender: FDA-Public Use
  Company Number: BE-JNJFOC-20050105634

PATIENT

DRUGS (1)
  1. REMICADE [Suspect]
     Indication: CROHN'S DISEASE
     Dosage: INFUSIONS ADMINISTERED 2 YEARS AGO, AT WEEKS 0, 2 AND 6.  3 IN TOTAL.
     Route: 042

REACTIONS (1)
  - PERICARDITIS [None]
